FAERS Safety Report 7474875-6 (Version None)
Quarter: 2011Q2

REPORT INFORMATION
  Report Type: 
  Country: None (occurrence: None)
  Receive Date: 20110512
  Receipt Date: 20110504
  Transmission Date: 20111010
  Serious: Yes (Death, Hospitalization, Other)
  Sender: FDA-Public Use
  Company Number: US-CELGENEUS-163-21880-11050620

PATIENT
  Age: 78 Year
  Sex: Male

DRUGS (15)
  1. IPRATROPIUM BROMIDE [Concomitant]
     Route: 065
  2. ATROVENT [Concomitant]
     Route: 065
  3. FUROSEMIDE [Concomitant]
     Route: 065
  4. REVLIMID [Suspect]
     Dosage: 5 MILLIGRAM
     Route: 048
     Dates: start: 20101001, end: 20101001
  5. VITAMIN B6 [Concomitant]
     Route: 065
  6. LISINOPRIL [Concomitant]
     Route: 065
  7. ISOSORBIDE MONONITRATE [Concomitant]
     Route: 065
  8. COMBIVENT [Concomitant]
     Route: 065
  9. NOVOLIN 70/30 [Concomitant]
     Route: 065
  10. MEGESTROL ACETATE [Concomitant]
     Route: 065
  11. ASPIRIN [Concomitant]
     Route: 065
  12. ISONIAZID [Concomitant]
     Route: 065
  13. REVLIMID [Suspect]
     Indication: MULTIPLE MYELOMA
     Dosage: 15 MILLIGRAM
     Route: 048
     Dates: start: 20100501, end: 20100801
  14. LOVASTATIN [Concomitant]
     Route: 065
  15. ATENOLOL [Concomitant]
     Route: 065

REACTIONS (3)
  - ACUTE MYOCARDIAL INFARCTION [None]
  - PANCYTOPENIA [None]
  - COMPLETED SUICIDE [None]
